FAERS Safety Report 8254861-9 (Version None)
Quarter: 2012Q1

REPORT INFORMATION
  Report Type: 
  Country: None (occurrence: None)
  Receive Date: 20120322
  Receipt Date: 20111220
  Transmission Date: 20120608
  Serious: Yes (Hospitalization)
  Sender: FDA-Public Use
  Company Number: UTC-013780

PATIENT
  Age: 62 Year
  Sex: Female
  Weight: 75.5 kg

DRUGS (4)
  1. LETAIRIS [Concomitant]
  2. DIURETICS (DIURETICS) [Concomitant]
  3. COUMADIN [Concomitant]
  4. TYVASO [Suspect]
     Indication: PULMONARY EMBOLISM
     Dosage: 18-54 MICROGRAMS (4 IN 1 D), INHALATION
     Route: 055
     Dates: start: 20091015

REACTIONS (4)
  - SURGERY [None]
  - TREATMENT NONCOMPLIANCE [None]
  - BLOOD PRESSURE DECREASED [None]
  - POST PROCEDURAL DISCOMFORT [None]
